FAERS Safety Report 9037907 (Version 2)
Quarter: 2013Q1

REPORT INFORMATION
  Report Type: Spontaneous
  Country: CH (occurrence: CH)
  Receive Date: 20130129
  Receipt Date: 20130311
  Transmission Date: 20140127
  Serious: Yes (Other)
  Sender: FDA-Public Use
  Company Number: CH-JNJFOC-20130113901

PATIENT
  Sex: Female
  Weight: 58.96 kg

DRUGS (11)
  1. XARELTO [Suspect]
     Indication: ATRIAL FIBRILLATION
     Route: 048
     Dates: start: 20120518
  2. XARELTO [Suspect]
     Indication: CEREBROVASCULAR ACCIDENT PROPHYLAXIS
     Route: 048
     Dates: start: 20120518
  3. METOPROLOL [Concomitant]
     Route: 065
  4. ELTROXIN [Concomitant]
     Route: 065
  5. PANTOPRAZOLE [Concomitant]
     Route: 065
  6. TORASEM [Concomitant]
     Route: 065
  7. BLOPRESS [Concomitant]
     Route: 065
  8. PRAVASTATIN [Concomitant]
     Route: 065
  9. CALCIUM CARBONATE / CHOLECALCIFEROL [Concomitant]
     Route: 065
  10. SPIRICORT [Concomitant]
     Route: 065
  11. NITROLINGUAL [Concomitant]
     Route: 065

REACTIONS (3)
  - Left ventricular failure [Unknown]
  - Dyspnoea [Unknown]
  - Weight increased [Unknown]
